FAERS Safety Report 6031474-0 (Version None)
Quarter: 2008Q4

REPORT INFORMATION
  Report Type: 
  Country: None (occurrence: None)
  Receive Date: 20081231
  Receipt Date: 20071203
  Transmission Date: 20090506
  Serious: Yes (Other)
  Sender: FDA-Public Use
  Company Number: WAES 0712USA01365

PATIENT

DRUGS (1)
  1. MEFOXIN [Suspect]
     Dosage: 1 GM/BID/
     Dates: start: 20071129, end: 20071129

REACTIONS (1)
  - PANCYTOPENIA [None]
